FAERS Safety Report 15157188 (Version 4)
Quarter: 2022Q4

REPORT INFORMATION
  Report Type: Spontaneous
  Country: AU (occurrence: AU)
  Receive Date: 20180718
  Receipt Date: 20221022
  Transmission Date: 20230113
  Serious: Yes (Hospitalization, Other)
  Sender: FDA-Public Use
  Company Number: AU-TEVA-2018-AU-927511

PATIENT
  Age: 42 Year
  Sex: Female

DRUGS (4)
  1. IMATINIB [Suspect]
     Active Substance: IMATINIB
     Indication: Chronic myeloid leukaemia
     Route: 065
  2. DASATINIB [Suspect]
     Active Substance: DASATINIB
     Indication: Chronic myeloid leukaemia
     Route: 065
  3. NILOTINIB [Suspect]
     Active Substance: NILOTINIB
     Indication: Chronic myeloid leukaemia
     Route: 065
  4. PONATINIB [Suspect]
     Active Substance: PONATINIB
     Indication: Chronic myeloid leukaemia
     Route: 065

REACTIONS (15)
  - Chest pain [Unknown]
  - Myocarditis [Unknown]
  - Pancreatitis [Unknown]
  - Cerebrovascular accident [Unknown]
  - Myocardial ischaemia [Unknown]
  - Vasospasm [Unknown]
  - Cytogenetic analysis abnormal [Unknown]
  - Supraventricular tachycardia [Unknown]
  - Headache [Unknown]
  - Palpitations [Unknown]
  - Drug intolerance [Unknown]
  - Abdominal pain upper [Unknown]
  - Toxicity to various agents [Unknown]
  - Heart rate increased [Unknown]
  - Lipase increased [Recovered/Resolved]

NARRATIVE: CASE EVENT DATE: 20180101
